FAERS Safety Report 4523566-X (Version None)
Quarter: 2004Q4

REPORT INFORMATION
  Report Type: 
  Country: None (occurrence: None)
  Receive Date: 20041209
  Receipt Date: 20041209
  Transmission Date: 20050328
  Serious: Yes (Life-Threatening, Hospitalization)
  Sender: FDA-Public Use
  Company Number: None

PATIENT
  Age: 42 Year
  Sex: Female
  Weight: 80.7403 kg

DRUGS (4)
  1. IRESSA [Suspect]
     Indication: OVARIAN CANCER
     Dosage: 250MG PO QD
     Route: 048
     Dates: start: 20041030, end: 20041119
  2. ARIMIDEX [Suspect]
     Indication: OVARIAN CANCER
     Dosage: 1MG PO QD
     Route: 048
     Dates: start: 20041030, end: 20041124
  3. ARANESP [Concomitant]
  4. ROBITUSSIN [Concomitant]

REACTIONS (7)
  - COUGH [None]
  - DYSPNOEA [None]
  - HYPOXIA [None]
  - MYALGIA [None]
  - PNEUMONITIS [None]
  - PULMONARY OEDEMA [None]
  - PYREXIA [None]
